FAERS Safety Report 5123367-8 (Version None)
Quarter: 2006Q4

REPORT INFORMATION
  Report Type: 
  Country: None (occurrence: None)
  Receive Date: 20061005
  Receipt Date: 20060915
  Transmission Date: 20070319
  Serious: No
  Sender: FDA-Public Use
  Company Number: 2006-147401-NL

PATIENT
  Sex: 0

DRUGS (5)
  1. MIRTAZAPINE [Suspect]
     Indication: DEPRESSION
     Dosage: 15 MG/30 MG/30 MG ORAL
     Route: 048
     Dates: start: 20040101, end: 20060101
  2. MIRTAZAPINE [Suspect]
     Indication: DEPRESSION
     Dosage: 15 MG/30 MG/30 MG ORAL
     Route: 048
     Dates: start: 20060101, end: 20060101
  3. MIRTAZAPINE [Suspect]
     Indication: DEPRESSION
     Dosage: 15 MG/30 MG/30 MG ORAL
     Route: 048
     Dates: start: 20060101
  4. OXAZEPAM [Concomitant]
  5. BISOPROLOL FUMARATE [Concomitant]

REACTIONS (1)
  - TACHYCARDIA [None]
